FAERS Safety Report 7121778-2 (Version None)
Quarter: 2010Q4

REPORT INFORMATION
  Report Type: 
  Country: None (occurrence: None)
  Receive Date: 20101124
  Receipt Date: 20101119
  Transmission Date: 20110411
  Serious: Yes (Hospitalization)
  Sender: FDA-Public Use
  Company Number: US-ROCHE-725162

PATIENT
  Sex: Male
  Weight: 97.1 kg

DRUGS (9)
  1. PEGASYS [Suspect]
     Indication: HEPATITIS C
     Route: 058
     Dates: start: 20100604, end: 20100820
  2. RIBASPHERE [Suspect]
     Indication: HEPATITIS C
     Dosage: DOSE: 600/600
     Route: 048
     Dates: start: 20100604, end: 20100820
  3. AMLODIPINE [Concomitant]
     Indication: HYPERTENSION
     Route: 048
  4. ASPIRIN [Concomitant]
     Route: 048
  5. IBUPROFEN [Concomitant]
     Indication: OSTEOARTHRITIS
     Route: 048
  6. HYZAAR [Concomitant]
     Indication: HYPERTENSION
     Dosage: DOSE: 50/12.5
     Route: 048
  7. METOPROLOL [Concomitant]
     Indication: HYPERTENSION
     Route: 048
  8. PANTOPRAZOLE [Concomitant]
     Route: 048
  9. SIMVASTATIN [Concomitant]
     Route: 048

REACTIONS (9)
  - ARTHRALGIA [None]
  - ASTHENIA [None]
  - CRYOGLOBULINAEMIA [None]
  - HYPOAESTHESIA [None]
  - MALAISE [None]
  - MONONEUROPATHY MULTIPLEX [None]
  - MYALGIA [None]
  - PARAESTHESIA [None]
  - VASCULITIS [None]
